APPROVED DRUG PRODUCT: GOZELLIX
Active Ingredient: GALLIUM GA-68 GOZETOTIDE
Strength: N/A
Dosage Form/Route: POWDER;INTRAVENOUS
Application: N219592 | Product #001
Applicant: TELIX INNOVATIONS SA
Approved: Mar 20, 2025 | RLD: Yes | RS: Yes | Type: RX

PATENTS:
Patent 11027031 | Expires: Jul 28, 2035